FAERS Safety Report 21072916 (Version 2)
Quarter: 2022Q3

REPORT INFORMATION
  Report Type: Spontaneous
  Country: US (occurrence: US)
  Receive Date: 20220712
  Receipt Date: 20220721
  Transmission Date: 20221026
  Serious: No
  Sender: FDA-Public Use
  Company Number: US-SA-SAC20220709000011

PATIENT
  Age: 51 Year
  Sex: Female

DRUGS (1)
  1. CAPLACIZUMAB-YHDP [Suspect]
     Active Substance: CAPLACIZUMAB-YHDP
     Indication: Thrombotic microangiopathy
     Dosage: 11 MG, QD
     Route: 058

REACTIONS (3)
  - Dizziness [Unknown]
  - Injection site pain [Unknown]
  - Product use in unapproved indication [Unknown]
